FAERS Safety Report 5598047-5 (Version None)
Quarter: 2008Q1

REPORT INFORMATION
  Report Type: 
  Country: None (occurrence: None)
  Receive Date: 20080122
  Receipt Date: 20080111
  Transmission Date: 20080703
  Serious: Yes (Other)
  Sender: FDA-Public Use
  Company Number: NO-ROCHE-487970

PATIENT
  Sex: Female
  Weight: 3.5 kg

DRUGS (1)
  1. ROACCUTAN [Suspect]
     Indication: ACNE
     Dosage: REPORTED AS TAKING 40MG AND 60MG ALTERNATING EVERY SECOND DAY.
     Dates: start: 20060515, end: 20061112

REACTIONS (2)
  - NO ADVERSE EVENT [None]
  - NORMAL NEWBORN [None]
